FAERS Safety Report 11098366 (Version 1)
Quarter: 2015Q2

REPORT INFORMATION
  Report Type: Spontaneous
  Country: US (occurrence: US)
  Receive Date: 20150507
  Receipt Date: 20150507
  Transmission Date: 20150821
  Serious: Yes (Death)
  Sender: FDA-Public Use
  Company Number: US-BAYER-2015-195467

PATIENT
  Sex: Male

DRUGS (1)
  1. MIRALAX [Suspect]
     Active Substance: POLYETHYLENE GLYCOL 3350
     Dosage: 1 TO 2 CAPFULS DAILY.
     Route: 048

REACTIONS (2)
  - Dementia Alzheimer^s type [Fatal]
  - Product use issue [None]

NARRATIVE: CASE EVENT DATE: 2011
